FAERS Safety Report 23663771 (Version 1)
Quarter: 2024Q1

REPORT INFORMATION
  Report Type: Spontaneous
  Country: US (occurrence: US)
  Receive Date: 20240322
  Receipt Date: 20240322
  Transmission Date: 20240410
  Serious: Yes (Hospitalization)
  Sender: FDA-Public Use
  Company Number: US-TILDE SCIENCES LLC-2024TIL00004

PATIENT
  Sex: Female

DRUGS (13)
  1. DARAPRIM [Suspect]
     Active Substance: PYRIMETHAMINE
     Indication: Cerebral toxoplasmosis
     Dosage: 2 TABLETS, 1X/DAY
     Route: 048
  2. ACETAMINOPHEN [Concomitant]
     Active Substance: ACETAMINOPHEN
  3. ALPRAZOLAM [Concomitant]
     Active Substance: ALPRAZOLAM
  4. AZITHROMYCIN [Concomitant]
     Active Substance: AZITHROMYCIN
  5. BIKTARVY [Concomitant]
     Active Substance: BICTEGRAVIR SODIUM\EMTRICITABINE\TENOFOVIR ALAFENAMIDE FUMARATE
  6. FAMOTIDINE [Concomitant]
     Active Substance: FAMOTIDINE
  7. LEUCOVORIN CALCIUM [Concomitant]
     Active Substance: LEUCOVORIN CALCIUM
  8. LIDOCAINE [Concomitant]
     Active Substance: LIDOCAINE
  9. MELATONIN [Concomitant]
     Active Substance: MELATONIN
  10. PENICILLIN G POTASSIUM [Concomitant]
     Active Substance: PENICILLIN G POTASSIUM
  11. PREDNISONE [Concomitant]
     Active Substance: PREDNISONE
  12. SODIUM CHLORIDE [Concomitant]
     Active Substance: SODIUM CHLORIDE
     Dosage: IV IN FLUSH SYRINGE
     Route: 042
  13. SULFADIAZINE [Concomitant]
     Active Substance: SULFADIAZINE
     Dosage: 2 TABLETS, 1X/DAY

REACTIONS (1)
  - Hospitalisation [Not Recovered/Not Resolved]
